FAERS Safety Report 4588029-4 (Version None)
Quarter: 2005Q1

REPORT INFORMATION
  Report Type: 
  Country: None (occurrence: None)
  Receive Date: 20050216
  Receipt Date: 20050208
  Transmission Date: 20050727
  Serious: Yes (Hospitalization, Disabling)
  Sender: FDA-Public Use
  Company Number: 2005015920

PATIENT
  Age: 42 Year
  Sex: Female
  Weight: 50.5 kg

DRUGS (13)
  1. ALDACTONE [Suspect]
     Indication: HYPERTENSION
     Dosage: 50 MG (DAILY), ORAL
     Route: 048
     Dates: start: 20040715, end: 20040826
  2. AMLODIPINE [Suspect]
     Indication: ILL-DEFINED DISORDER
     Dosage: ORAL
     Route: 048
     Dates: start: 20031021, end: 20040417
  3. MINIPRESS [Suspect]
     Indication: HYPERTENSION
     Dosage: 2 MG (1 MG, BID),ORAL
     Route: 048
     Dates: start: 20040601, end: 20040826
  4. DONEPEZIL (DONEPEZIL) [Suspect]
     Indication: DEMENTIA ALZHEIMER'S TYPE
     Dosage: 5 MG (5 MG, DAILY), ORAL
     Route: 048
     Dates: start: 20020401, end: 20040826
  5. FUROSEMIDE (FUROSEMIDE) (FUROSEMIDE) [Suspect]
     Indication: ILL-DEFINED DISORDER
     Dosage: ORAL
     Route: 048
     Dates: start: 20040715, end: 20040721
  6. CLARITHROMYCIN [Suspect]
     Indication: ILL-DEFINED DISORDER
     Dosage: ORAL
     Route: 048
     Dates: start: 20040818, end: 20040823
  7. DELAPRIL HYDROCHLORIDE (DELAPRIL  HYDROCHLORIDE) [Suspect]
     Indication: HYPERTENSION
     Dosage: 30 MG (15 MG, BID), ORAL
     Route: 048
     Dates: start: 20040417, end: 20040826
  8. CANDESARTAN CILEXETIL (CANDESARTAN CILEXETIL) [Suspect]
     Indication: HYPERTENSION
     Dosage: 4 MG (4 MG, DAILY), ORAL
     Route: 048
     Dates: start: 20040710, end: 20040826
  9. METOPROLOL TARTRATE [Suspect]
     Indication: DIASTOLIC HYPERTENSION
     Dosage: 60 MG (20 MG, TID)
     Dates: start: 20040611, end: 20040710
  10. TIAPRIDE HYDROCHLORIDE (TIAPRIDE HYDROCHLORIDE) [Suspect]
     Indication: DEMENTIA ALZHEIMER'S TYPE
     Dosage: ORAL
     Route: 048
     Dates: start: 20020401, end: 20040826
  11. MAGNESIUM OXIDE (MAGNESIUM OXIDE) [Concomitant]
  12. PANTETHINE (PANTETHINE) [Concomitant]
  13. NTRAZEPAM (NITRAZEPAM) [Concomitant]

REACTIONS (17)
  - BLISTER [None]
  - BRADYCARDIA [None]
  - DRUG INTERACTION [None]
  - DYSPHAGIA [None]
  - EXTRAPYRAMIDAL DISORDER [None]
  - FEELING COLD [None]
  - GINGIVAL HYPERTROPHY [None]
  - HYPOTHERMIA [None]
  - HYPOXIC ENCEPHALOPATHY [None]
  - NEUROLEPTIC MALIGNANT SYNDROME [None]
  - OLIGURIA [None]
  - PALLOR [None]
  - QUADRIPLEGIA [None]
  - RHABDOMYOLYSIS [None]
  - SHOCK [None]
  - SPEECH DISORDER [None]
  - WEIGHT DECREASED [None]
